FAERS Safety Report 5955180-3 (Version None)
Quarter: 2008Q4

REPORT INFORMATION
  Report Type: 
  Country: None (occurrence: None)
  Receive Date: 20081117
  Receipt Date: 20081114
  Transmission Date: 20090506
  Serious: Yes (Other)
  Sender: FDA-Public Use
  Company Number: US-BIOGENIDEC-2007BI015825

PATIENT
  Age: 48 Year
  Sex: Female
  Weight: 45 kg

DRUGS (3)
  1. TYSABRI [Suspect]
     Indication: MULTIPLE SCLEROSIS
     Route: 042
     Dates: start: 20070718
  2. EVISTA [Concomitant]
     Indication: OSTEOPOROSIS
     Dates: start: 20000101
  3. INSULIN PUMP [Concomitant]
     Indication: TYPE 1 DIABETES MELLITUS
     Dates: start: 19790101

REACTIONS (9)
  - BLOOD GLUCOSE DECREASED [None]
  - DIARRHOEA [None]
  - FATIGUE [None]
  - HYPERCHLORHYDRIA [None]
  - MULTIPLE SCLEROSIS [None]
  - NEUROPATHY PERIPHERAL [None]
  - NUCLEAR MAGNETIC RESONANCE IMAGING ABNORMAL [None]
  - OSTEOPOROSIS [None]
  - TYPE 1 DIABETES MELLITUS [None]
